FAERS Safety Report 23101864 (Version 1)
Quarter: 2023Q4

REPORT INFORMATION
  Report Type: Report from Study
  Country: CA (occurrence: CA)
  Receive Date: 20231025
  Receipt Date: 20231025
  Transmission Date: 20240110
  Serious: Yes (Hospitalization)
  Sender: FDA-Public Use
  Company Number: CA-ABBVIE-5461700

PATIENT
  Sex: Male

DRUGS (1)
  1. RINVOQ [Suspect]
     Active Substance: UPADACITINIB
     Indication: Rheumatoid arthritis
     Dosage: FORM STRENGTH: 15 MILLIGRAM, LAST ADMIN DATE 2023
     Route: 048
     Dates: start: 20230328

REACTIONS (1)
  - Gastrointestinal disorder [Not Recovered/Not Resolved]

NARRATIVE: CASE EVENT DATE: 20230101
